FAERS Safety Report 9466059 (Version 1)
Quarter: 2013Q3

REPORT INFORMATION
  Report Type: Spontaneous
  Country: US (occurrence: None)
  Receive Date: 20130816
  Receipt Date: 20130816
  Transmission Date: 20140515
  Serious: Yes (Other)
  Sender: FDA-Public Use
  Company Number: None

PATIENT
  Age: 65 Year
  Sex: Female

DRUGS (3)
  1. LEVAQUIN [Suspect]
     Indication: URINARY TRACT INFECTION
     Dosage: FOUR TIMES DAILY
     Dates: start: 20120318, end: 20120323
  2. LEVAQUIN [Suspect]
     Indication: DIVERTICULITIS
     Dosage: FOUR TIMES DAILY
     Dates: start: 20120318, end: 20120323
  3. CIPRO [Suspect]

REACTIONS (2)
  - Headache [None]
  - Gait disturbance [None]
